FAERS Safety Report 20901379 (Version 2)
Quarter: 2022Q2

REPORT INFORMATION
  Report Type: Spontaneous
  Country: GR (occurrence: GR)
  Receive Date: 20220601
  Receipt Date: 20220608
  Transmission Date: 20220721
  Serious: Yes (Other)
  Sender: FDA-Public Use
  Company Number: GR-UCBSA-2022030928

PATIENT
  Age: 42 Year
  Sex: Female

DRUGS (3)
  1. NEUPRO [Suspect]
     Active Substance: ROTIGOTINE
     Indication: Restless legs syndrome
     Dosage: 3 MILLIGRAM, ONCE DAILY (QD)
  2. NEUPRO [Suspect]
     Active Substance: ROTIGOTINE
     Dosage: 4.5MG
  3. PRAMIPEXOLE [Concomitant]
     Active Substance: PRAMIPEXOLE
     Indication: Restless legs syndrome

REACTIONS (6)
  - Restless legs syndrome [Recovering/Resolving]
  - Mental disorder [Recovering/Resolving]
  - Insomnia [Recovering/Resolving]
  - Wrong technique in product usage process [Unknown]
  - Overdose [Unknown]
  - Intentional product use issue [Unknown]
